FAERS Safety Report 6048368-7 (Version None)
Quarter: 2009Q1

REPORT INFORMATION
  Report Type: 
  Country: None (occurrence: None)
  Receive Date: 20090123
  Receipt Date: 20090119
  Transmission Date: 20090719
  Serious: Yes (Hospitalization)
  Sender: FDA-Public Use
  Company Number: FR-BRISTOL-MYERS SQUIBB COMPANY-14476535

PATIENT
  Age: 68 Year
  Sex: Male

DRUGS (1)
  1. KENACORT [Suspect]
     Indication: HYPERSENSITIVITY
     Dosage: KENACORT RETARD 80 MG/2ML 80 MG SINGLE ADMINISTRATION
     Route: 030
     Dates: start: 20080910

REACTIONS (2)
  - ARTHRITIS [None]
  - FASCIITIS [None]
